FAERS Safety Report 4918620-4 (Version None)
Quarter: 2006Q1

REPORT INFORMATION
  Report Type: 
  Country: None (occurrence: None)
  Receive Date: 20060220
  Receipt Date: 20060220
  Transmission Date: 20060701
  Serious: Yes (Life-Threatening, Hospitalization, Other)
  Sender: FDA-Public Use
  Company Number: None

PATIENT
  Age: 49 Year
  Sex: Female
  Weight: 81.6475 kg

DRUGS (1)
  1. SEROQUEL [Suspect]
     Indication: BIPOLAR I DISORDER
     Dosage: SEROQUEL  300 MGS. ONCE AT NIGHT PO
     Route: 048
     Dates: start: 19991219, end: 20060220

REACTIONS (4)
  - ABNORMAL BEHAVIOUR [None]
  - ACCIDENTAL OVERDOSE [None]
  - FEELING ABNORMAL [None]
  - THINKING ABNORMAL [None]
